FAERS Safety Report 8025825-5 (Version None)
Quarter: 2012Q1

REPORT INFORMATION
  Report Type: 
  Country: None (occurrence: None)
  Receive Date: 20120105
  Receipt Date: 20110325
  Transmission Date: 20120608
  Serious: No
  Sender: FDA-Public Use
  Company Number: US-ABBOTT-11P-163-0714932-00

PATIENT
  Sex: Female

DRUGS (2)
  1. SYNTHROID [Suspect]
     Indication: HYPOTHYROIDISM
     Dosage: 100 DAILY DOSE
     Dates: start: 20110301
  2. SYNTHROID [Suspect]
     Dates: start: 20110301

REACTIONS (3)
  - DRUG INEFFECTIVE [None]
  - BLOOD THYROID STIMULATING HORMONE DECREASED [None]
  - TABLET PHYSICAL ISSUE [None]
